FAERS Safety Report 9506085 (Version 1)
Quarter: 2013Q1

REPORT INFORMATION
  Report Type: Spontaneous
  Country: US (occurrence: None)
  Receive Date: 20130201
  Receipt Date: 20130201
  Transmission Date: 20140127
  Serious: Yes (Other)
  Sender: FDA-Public Use
  Company Number: 7109770

PATIENT
  Age: 67 Year
  Sex: Male
  Weight: 54 kg

DRUGS (3)
  1. CYANOKIT [Suspect]
     Indication: BLOOD CYANIDE
     Dates: start: 20120125
  2. ROXANOL (MORPHINE SULFATE) [Concomitant]
  3. LACTULOSE (LACTULOSE) [Concomitant]

REACTIONS (1)
  - Erythema [None]
